FAERS Safety Report 9870267 (Version 1)
Quarter: 2014Q1

REPORT INFORMATION
  Report Type: Spontaneous
  Country: US (occurrence: None)
  Receive Date: 20140131
  Receipt Date: 20140131
  Transmission Date: 20141002
  Serious: Yes (Death)
  Sender: FDA-Public Use
  Company Number: 2014AP000604

PATIENT
  Age: 60 Year
  Sex: Female

DRUGS (7)
  1. METFORMIN [Suspect]
     Route: 048
  2. ZOLPIDEM TARTRATE TABLETS [Suspect]
     Route: 048
  3. LISINOPRIL AND HYDROCHLOROTHIAZIDE [Suspect]
     Route: 048
  4. ONDANSERTRON HYDROCHLORIDE [Suspect]
     Route: 048
  5. PRAVASTATIN SODIUM TABLETS USP [Suspect]
     Route: 048
  6. ATENOLOL [Suspect]
     Route: 048
  7. DIGOXIN [Suspect]
     Route: 048

REACTIONS (2)
  - Completed suicide [None]
  - Exposure via ingestion [None]
